FAERS Safety Report 14617020 (Version 1)
Quarter: 2018Q1

REPORT INFORMATION
  Report Type: Report from Study
  Country: TR (occurrence: TR)
  Receive Date: 20180309
  Receipt Date: 20180309
  Transmission Date: 20180509
  Serious: Yes (Other)
  Sender: FDA-Public Use
  Company Number: PHHY2017TR194500

PATIENT
  Age: 61 Year
  Sex: Female

DRUGS (5)
  1. CO-DIOVAN [Concomitant]
     Active Substance: HYDROCHLOROTHIAZIDE\VALSARTAN
     Indication: PRODUCT USED FOR UNKNOWN INDICATION
     Dosage: 12.5 MG, UNK
     Route: 048
     Dates: start: 20170101
  2. VOTRIENT [Suspect]
     Active Substance: PAZOPANIB HYDROCHLORIDE
     Indication: RENAL CELL CARCINOMA
     Dosage: 800 MG, UNK
     Route: 048
     Dates: start: 20170708
  3. EUTHYROX [Concomitant]
     Active Substance: LEVOTHYROXINE SODIUM
     Indication: PRODUCT USED FOR UNKNOWN INDICATION
     Dosage: 75 MG, UNK
     Route: 048
     Dates: start: 20171013
  4. EUTHYROX [Concomitant]
     Active Substance: LEVOTHYROXINE SODIUM
     Dosage: 50 OT, UNK
     Route: 048
     Dates: start: 20180126
  5. NORVASC [Concomitant]
     Active Substance: AMLODIPINE BESYLATE
     Indication: PRODUCT USED FOR UNKNOWN INDICATION
     Dosage: 5 MG, UNK
     Route: 065
     Dates: start: 20170822

REACTIONS (7)
  - Dry skin [Not Recovered/Not Resolved]
  - Diarrhoea [Not Recovered/Not Resolved]
  - Hypothyroidism [Recovered/Resolved]
  - Proteinuria [Not Recovered/Not Resolved]
  - Hyperthyroidism [Not Recovered/Not Resolved]
  - Hypertension [Recovered/Resolved]
  - Hair colour changes [Not Recovered/Not Resolved]

NARRATIVE: CASE EVENT DATE: 20170814
